FAERS Safety Report 5366400-0 (Version None)
Quarter: 2007Q2

REPORT INFORMATION
  Report Type: 
  Country: None (occurrence: None)
  Receive Date: 20070622
  Receipt Date: 20070611
  Transmission Date: 20071010
  Serious: Yes (Other)
  Sender: FDA-Public Use
  Company Number: PHBS2007CH09640

PATIENT
  Age: 53 Year
  Sex: Female

DRUGS (5)
  1. ZELMAC [Suspect]
     Indication: IRRITABLE BOWEL SYNDROME
     Dosage: 6-12 MG/DAY
     Route: 065
     Dates: start: 20030101, end: 20070602
  2. OMED [Concomitant]
     Dosage: 40 MG/DAY
     Route: 065
  3. LESCOL [Concomitant]
     Dosage: 80 MG/DAY
     Route: 065
  4. ATACAND [Concomitant]
     Dosage: 1 TAB/DAY
     Route: 065
  5. AMLODIPINE [Concomitant]
     Dosage: 5 MG/DAY
     Route: 065

REACTIONS (4)
  - DIZZINESS [None]
  - LOSS OF CONSCIOUSNESS [None]
  - SYNCOPE [None]
  - VENTRICULAR EXTRASYSTOLES [None]
